FAERS Safety Report 8212714-6 (Version None)
Quarter: 2012Q1

REPORT INFORMATION
  Report Type: 
  Country: None (occurrence: None)
  Receive Date: 20120315
  Receipt Date: 20120315
  Transmission Date: 20120608
  Serious: No
  Sender: FDA-Public Use
  Company Number: US-BAYER-2012-025337

PATIENT
  Sex: Female

DRUGS (4)
  1. VESICARE [Concomitant]
  2. CALCIUM D [Concomitant]
  3. BETASERON [Suspect]
     Dosage: 0.25 MG, QOD
     Route: 058
  4. CITALOPRAM HYDROBROMIDE [Concomitant]

REACTIONS (1)
  - INJECTION SITE PAIN [None]
